FAERS Safety Report 4760779-6 (Version None)
Quarter: 2005Q3

REPORT INFORMATION
  Report Type: 
  Country: None (occurrence: None)
  Receive Date: 20050902
  Receipt Date: 20050825
  Transmission Date: 20060218
  Serious: Yes (Hospitalization)
  Sender: FDA-Public Use
  Company Number: FR-ABBOTT-05P-056-0309633-00

PATIENT
  Age: 38 Year
  Sex: Male

DRUGS (7)
  1. KALETRA [Suspect]
     Indication: HIV INFECTION
     Route: 048
     Dates: start: 20050531, end: 20050617
  2. CARBAMAZEPINE [Suspect]
     Indication: HERPES ZOSTER
     Route: 048
     Dates: start: 20050531, end: 20050617
  3. CARBAMAZEPINE [Suspect]
     Indication: PAIN
  4. TENOFOVIR [Suspect]
     Indication: HIV INFECTION
     Route: 048
     Dates: start: 20050531, end: 20050617
  5. EMTRICITABINE [Suspect]
     Indication: HIV INFECTION
     Route: 048
     Dates: start: 20050531, end: 20050617
  6. TRIMEBUTINE [Concomitant]
     Indication: DRUG USE FOR UNKNOWN INDICATION
     Route: 065
     Dates: start: 20050601
  7. CLAVULIN [Concomitant]
     Indication: ANTI-INFECTIVE THERAPY
     Route: 048
     Dates: start: 20050601, end: 20050711

REACTIONS (19)
  - ANOREXIA [None]
  - ASPARTATE AMINOTRANSFERASE INCREASED [None]
  - BLOOD AMYLASE INCREASED [None]
  - C-REACTIVE PROTEIN INCREASED [None]
  - CUTANEOUS VASCULITIS [None]
  - CYTOLYTIC HEPATITIS [None]
  - DIARRHOEA [None]
  - ENTERITIS [None]
  - HYPOCALCAEMIA [None]
  - HYPONATRAEMIA [None]
  - ILEUS PARALYTIC [None]
  - LEUKOPLAKIA ORAL [None]
  - LIPASE INCREASED [None]
  - LYMPHADENOPATHY [None]
  - MUSCLE CONTRACTURE [None]
  - PHARYNGEAL ERYTHEMA [None]
  - PURPURA [None]
  - ROSACEA [None]
  - VOMITING [None]
